FAERS Safety Report 21790400 (Version 4)
Quarter: 2025Q4

REPORT INFORMATION
  Report Type: Spontaneous
  Country: US (occurrence: US)
  Receive Date: 20221228
  Receipt Date: 20251124
  Transmission Date: 20260118
  Serious: Yes (Hospitalization, Other)
  Sender: TEVA
  Company Number: US-TEVA-2022-US-2841541

PATIENT
  Age: 60 Year
  Sex: Female
  Weight: 147.4 kg

DRUGS (19)
  1. AMLODIPINE\HYDROCHLOROTHIAZIDE\VALSARTAN [Suspect]
     Active Substance: AMLODIPINE\HYDROCHLOROTHIAZIDE\VALSARTAN
     Indication: Hypertension
     Dosage: DOSAGE TEXT: AMLODIPINE 10MG/VALSARTAN 320MG/HYDROCHLOROTHIZIDE 25 MG. TEVA
     Route: 048
     Dates: start: 20170828, end: 20170927
  2. LOSARTAN [Concomitant]
     Active Substance: LOSARTAN
     Indication: Hypertension
     Dates: start: 2015, end: 2019
  3. LOVASTATIN [Concomitant]
     Active Substance: LOVASTATIN
     Indication: Hypertension
     Dosage: DOSAGE TEXT: ONCE AT NIGHT
     Dates: start: 2014, end: 2021
  4. METHOCARBAMOL [Concomitant]
     Active Substance: METHOCARBAMOL
     Indication: Muscle relaxant therapy
     Dosage: DOSAGE TEXT: ONCE AT NIGHT
     Dates: start: 2015, end: 2019
  5. TRAMADOL HCL [Concomitant]
     Active Substance: TRAMADOL HYDROCHLORIDE
     Indication: Pain
     Dates: start: 2015, end: 2020
  6. ATORVASTATIN [Concomitant]
     Active Substance: ATORVASTATIN
     Indication: Blood cholesterol increased
     Dates: start: 2016, end: 2017
  7. HYDROCHLOROTHIAZIDE [Concomitant]
     Active Substance: HYDROCHLOROTHIAZIDE
     Indication: Hypertension
     Dates: start: 2014, end: 2018
  8. PANTOPRAZOLE [Concomitant]
     Active Substance: PANTOPRAZOLE
     Indication: Dyspepsia
     Dates: start: 2017, end: 2020
  9. VITAMIN D2 [Concomitant]
     Active Substance: ERGOCALCIFEROL
     Indication: Vitamin supplementation
     Dates: start: 2017, end: 2018
  10. ASPIRIN [Concomitant]
     Active Substance: ASPIRIN
     Indication: Cardiovascular event prophylaxis
     Dates: start: 2016
  11. VITAMIN B12 [Concomitant]
     Active Substance: CYANOCOBALAMIN
     Indication: Vitamin supplementation
     Dates: start: 2017
  12. VITAMINS [Concomitant]
     Active Substance: VITAMINS
     Indication: Vitamin supplementation
     Dates: start: 2015
  13. AMLODIPINE\HYDROCHLOROTHIAZIDE\VALSARTAN [Suspect]
     Active Substance: AMLODIPINE\HYDROCHLOROTHIAZIDE\VALSARTAN
     Indication: Hypertension
     Dosage: DOSAGE TEXT: AMLODIPINE 10MG/VALSARTAN 320MG/HYDROCHLOROTHIZIDE 25 MG
     Route: 048
     Dates: start: 20170929, end: 20181031
  14. FLUOXETINE [Concomitant]
     Active Substance: FLUOXETINE HYDROCHLORIDE
     Indication: Mixed anxiety and depressive disorder
     Dosage: DOSAGE TEXT: ONCE AT NIGHT
     Dates: start: 2015, end: 2020
  15. MELOXICAM [Concomitant]
     Active Substance: MELOXICAM
     Indication: Pain
     Dates: start: 2015, end: 2020
  16. VERAPAMIL HYDROCHLORIDE [Concomitant]
     Active Substance: VERAPAMIL HYDROCHLORIDE
     Indication: Hypertension
     Dates: start: 2015, end: 2017
  17. LOSARTAN [Suspect]
     Active Substance: LOSARTAN
     Indication: Product used for unknown indication
     Route: 065
  18. IRBESARTAN [Suspect]
     Active Substance: IRBESARTAN
     Indication: Product used for unknown indication
     Route: 065
  19. VALSARTAN [Suspect]
     Active Substance: VALSARTAN
     Indication: Product used for unknown indication
     Route: 065

REACTIONS (1)
  - Gastrointestinal stromal tumour [Recovered/Resolved]
